FAERS Safety Report 10155823 (Version 2)
Quarter: 2014Q2

REPORT INFORMATION
  Report Type: Report from Study
  Country: US (occurrence: US)
  Receive Date: 20140506
  Receipt Date: 20140520
  Transmission Date: 20141212
  Serious: Yes (Other)
  Sender: FDA-Public Use
  Company Number: US-GILEAD-2014-0101634

PATIENT
  Sex: Male
  Weight: 96.6 kg

DRUGS (1)
  1. TENOFOVIR DISOPROXIL FUMARATE [Suspect]
     Indication: HIV INFECTION
     Dosage: 300 MG, UNK
     Route: 065

REACTIONS (5)
  - Colitis ulcerative [Unknown]
  - Bone cancer [Unknown]
  - Squamous cell carcinoma [Unknown]
  - Osteonecrosis of jaw [Unknown]
  - Bone density decreased [Unknown]
